FAERS Safety Report 7005702-9 (Version None)
Quarter: 2010Q3

REPORT INFORMATION
  Report Type: 
  Country: None (occurrence: None)
  Receive Date: 20100921
  Receipt Date: 20100913
  Transmission Date: 20110219
  Serious: Yes (Other)
  Sender: FDA-Public Use
  Company Number: SE-MERCK-1009SWE00025

PATIENT
  Age: 57 Year
  Sex: Female

DRUGS (6)
  1. FOSAMAX [Suspect]
     Route: 048
     Dates: start: 20010101, end: 20010101
  2. RISEDRONATE SODIUM [Suspect]
     Route: 048
     Dates: start: 20020101, end: 20090101
  3. PREDNISOLONE [Concomitant]
     Route: 048
  4. PREDNISOLONE [Concomitant]
     Route: 048
  5. OMEPRAZOLE [Concomitant]
     Route: 048
     Dates: start: 20000101
  6. OMEPRAZOLE [Concomitant]
     Route: 048
     Dates: start: 20000101

REACTIONS (1)
  - FEMUR FRACTURE [None]
